FAERS Safety Report 15531643 (Version 1)
Quarter: 2018Q4

REPORT INFORMATION
  Report Type: Spontaneous
  Country: US (occurrence: US)
  Receive Date: 20181019
  Receipt Date: 20181019
  Transmission Date: 20190205
  Serious: No
  Sender: FDA-Public Use
  Company Number: US-PFIZER INC-2018418580

PATIENT
  Sex: Female

DRUGS (1)
  1. GABAPENTIN. [Suspect]
     Active Substance: GABAPENTIN
     Dosage: 300 MG, THREE TIMES A DAY
     Route: 048

REACTIONS (1)
  - Drug ineffective [Unknown]
